FAERS Safety Report 23971380 (Version 1)
Quarter: 2024Q2

REPORT INFORMATION
  Report Type: Spontaneous
  Country: ES (occurrence: ES)
  Receive Date: 20240613
  Receipt Date: 20240613
  Transmission Date: 20240716
  Serious: Yes (Hospitalization, Other)
  Sender: FDA-Public Use
  Company Number: ES-OTSUKA-2024_015249

PATIENT
  Age: 59 Year
  Sex: Female

DRUGS (3)
  1. ARIPIPRAZOLE [Suspect]
     Active Substance: ARIPIPRAZOLE
     Indication: Dementia
     Dosage: 5 MILLIGRAM, QD (IN THE MORNINGS)
     Route: 065
  2. ARIPIPRAZOLE [Suspect]
     Active Substance: ARIPIPRAZOLE
     Indication: Major depression
  3. LURASIDONE [Suspect]
     Active Substance: LURASIDONE
     Indication: Product used for unknown indication
     Dosage: 74 MILLIGRAM, QD
     Route: 065

REACTIONS (5)
  - Dementia Alzheimer^s type [Recovering/Resolving]
  - Tic [Unknown]
  - Executive dysfunction [Unknown]
  - Tremor [Unknown]
  - Product use in unapproved indication [Unknown]
